FAERS Safety Report 8624272-2 (Version None)
Quarter: 2012Q3

REPORT INFORMATION
  Report Type: 
  Country: None (occurrence: None)
  Receive Date: 20120827
  Receipt Date: 20120814
  Transmission Date: 20120928
  Serious: Yes (Other)
  Sender: FDA-Public Use
  Company Number: AU-CELGENEUS-008-20785-09080856

PATIENT
  Sex: Male
  Weight: 99 kg

DRUGS (3)
  1. VIDAZA [Suspect]
     Dosage: 165 MILLIGRAM
     Route: 058
     Dates: start: 20090812
  2. VIDAZA [Suspect]
     Dosage: 165 MILLIGRAM
     Route: 058
     Dates: start: 20090713, end: 20090719
  3. THALIDOMIDE [Suspect]
     Dosage: 100 MILLIGRAM
     Route: 048

REACTIONS (1)
  - MIGRAINE WITH AURA [None]
